APPROVED DRUG PRODUCT: VERAPAMIL HYDROCHLORIDE
Active Ingredient: VERAPAMIL HYDROCHLORIDE
Strength: 2.5MG/ML
Dosage Form/Route: INJECTABLE;INJECTION
Application: A070451 | Product #001
Applicant: INTERNATIONAL MEDICATION SYSTEM
Approved: Dec 16, 1985 | RLD: No | RS: No | Type: DISCN